FAERS Safety Report 8891035 (Version 1)
Quarter: 2012Q4

REPORT INFORMATION
  Report Type: Report from Study
  Country: TR (occurrence: TR)
  Receive Date: 20121107
  Receipt Date: 20121107
  Transmission Date: 20130627
  Serious: Yes (Death)
  Sender: FDA-Public Use
  Company Number: TR-ROCHE-1153475

PATIENT
  Age: 74 Year
  Sex: Male

DRUGS (2)
  1. CAPECITABINE [Suspect]
     Indication: COLON CANCER
     Route: 065
     Dates: start: 20120824, end: 20121101
  2. CAPECITABINE [Suspect]
     Indication: METASTASES TO LIVER

REACTIONS (1)
  - Disease progression [Fatal]
